FAERS Safety Report 15837160 (Version 3)
Quarter: 2021Q2

REPORT INFORMATION
  Report Type: Spontaneous
  Country: US (occurrence: US)
  Receive Date: 20190117
  Receipt Date: 20210527
  Transmission Date: 20210716
  Serious: Yes (Disabling, Other)
  Sender: FDA-Public Use
  Company Number: US-TEVA-2019-US-997820

PATIENT
  Age: 36 Year
  Sex: Female
  Weight: 58.11 kg

DRUGS (20)
  1. ALOXI [Concomitant]
     Active Substance: PALONOSETRON HYDROCHLORIDE
     Route: 065
     Dates: start: 20131127, end: 20140319
  2. VITAMIN D [Concomitant]
     Active Substance: VITAMIN D NOS
     Route: 065
  3. HERCEPTIN [Suspect]
     Active Substance: TRASTUZUMAB
     Indication: BREAST CANCER FEMALE
     Route: 042
     Dates: start: 20140717, end: 20141009
  4. HERCEPTIN [Suspect]
     Active Substance: TRASTUZUMAB
     Route: 042
     Dates: start: 20141030, end: 20150219
  5. HERCEPTIN [Suspect]
     Active Substance: TRASTUZUMAB
     Route: 042
     Dates: start: 20131127
  6. ZOFRAN [Concomitant]
     Active Substance: ONDANSETRON HYDROCHLORIDE
     Route: 065
     Dates: start: 20131203
  7. FERROUS SULFATE. [Concomitant]
     Active Substance: FERROUS SULFATE
     Route: 065
  8. DOCETAXEL?WINTHROP [Suspect]
     Active Substance: DOCETAXEL
     Indication: BREAST CANCER FEMALE
     Dosage: 6 CYCLES, EVERY THREE WEEKS
     Route: 065
     Dates: start: 20131127, end: 20140319
  9. DECADRON [Concomitant]
     Active Substance: DEXAMETHASONE
     Route: 065
     Dates: start: 20131127, end: 20140319
  10. BENADRYL [Concomitant]
     Active Substance: DIPHENHYDRAMINE HYDROCHLORIDE
     Route: 065
     Dates: start: 20131127
  11. GABAPENTIN. [Concomitant]
     Active Substance: GABAPENTIN
     Dosage: 2Q AM, 1Q NOON, 3Q PM
     Route: 065
     Dates: start: 20140310, end: 20140502
  12. NEULASTA [Concomitant]
     Active Substance: PEGFILGRASTIM
     Route: 065
     Dates: start: 20131128, end: 20140320
  13. DOCETAXEL?ACTAVIS [Suspect]
     Active Substance: DOCETAXEL
     Indication: BREAST CANCER FEMALE
     Dosage: 6 CYCLES, EVERY THREE WEEKS
     Route: 065
     Dates: start: 20131127, end: 20140319
  14. TAXOTERE [Suspect]
     Active Substance: DOCETAXEL
     Indication: BREAST CANCER FEMALE
     Dosage: 6 CYCLES, EVERY THREE WEEKS
     Route: 065
     Dates: start: 20131127, end: 20140319
  15. PARAPLATIN [Suspect]
     Active Substance: CARBOPLATIN
     Indication: BREAST CANCER FEMALE
     Dosage: 6 CYCLES
     Route: 065
     Dates: start: 20131127, end: 20140319
  16. KYTRIL [Concomitant]
     Active Substance: GRANISETRON HYDROCHLORIDE
     Route: 065
     Dates: start: 20131203
  17. TYLENOL [Concomitant]
     Active Substance: ACETAMINOPHEN
     Route: 065
     Dates: start: 20131127
  18. IRON [Concomitant]
     Active Substance: IRON
     Indication: IRON DEFICIENCY ANAEMIA
     Route: 048
  19. EMEND [Concomitant]
     Active Substance: APREPITANT
     Route: 065
     Dates: start: 20131127, end: 20140319
  20. PERJETA [Suspect]
     Active Substance: PERTUZUMAB
     Indication: BREAST CANCER FEMALE
     Dosage: 6 CYCLES
     Route: 065
     Dates: start: 20131127, end: 20140319

REACTIONS (16)
  - Fatigue [Unknown]
  - Muscular weakness [Unknown]
  - Anaemia [Unknown]
  - Nausea [Unknown]
  - Fine motor skill dysfunction [Unknown]
  - Alopecia totalis [Not Recovered/Not Resolved]
  - Hair colour changes [Not Recovered/Not Resolved]
  - Taste disorder [Unknown]
  - Oral candidiasis [Recovering/Resolving]
  - Anorectal discomfort [Not Recovered/Not Resolved]
  - Madarosis [Not Recovered/Not Resolved]
  - Neuropathy peripheral [Not Recovered/Not Resolved]
  - Hair texture abnormal [Not Recovered/Not Resolved]
  - Stomatitis [Unknown]
  - Hypoaesthesia [Unknown]
  - Diarrhoea [Unknown]

NARRATIVE: CASE EVENT DATE: 201312
